FAERS Safety Report 7176362-1 (Version None)
Quarter: 2010Q4

REPORT INFORMATION
  Report Type: 
  Country: None (occurrence: None)
  Receive Date: 20101207
  Receipt Date: 20101130
  Transmission Date: 20110411
  Serious: Yes (Death, Other)
  Sender: FDA-Public Use
  Company Number: 2010US004877

PATIENT
  Age: 67 Year
  Sex: Male

DRUGS (3)
  1. PROGRAF [Suspect]
     Indication: LUNG TRANSPLANT
  2. MYCOPHENOLATE MOFETIL [Concomitant]
  3. TRIMETHOPRIM + SULFAMETHOXAZOLE [Concomitant]

REACTIONS (4)
  - PNEUMONIA NECROTISING [None]
  - PNEUMONIA STAPHYLOCOCCAL [None]
  - PSEUDOMONAS INFECTION [None]
  - RESPIRATORY FAILURE [None]
